FAERS Safety Report 4980632-2 (Version None)
Quarter: 2006Q2

REPORT INFORMATION
  Report Type: 
  Country: None (occurrence: None)
  Receive Date: 20060424
  Receipt Date: 20050919
  Transmission Date: 20061013
  Serious: Yes (Hospitalization, Other)
  Sender: FDA-Public Use
  Company Number: US-MERCK-0509USA02668

PATIENT
  Age: 29 Year
  Sex: Male
  Weight: 145 kg

DRUGS (6)
  1. VIOXX [Suspect]
     Indication: PAIN
     Route: 048
     Dates: start: 20010801, end: 20020801
  2. ZESTRIL [Concomitant]
     Route: 065
  3. LOTREL [Concomitant]
     Route: 065
  4. [THERAPY UNSPECIFIED] [Concomitant]
     Route: 065
  5. HYDROCODIN [Concomitant]
     Indication: BACK PAIN
     Route: 065
     Dates: end: 20020101
  6. PERCOCET [Concomitant]
     Indication: BACK PAIN
     Route: 065
     Dates: end: 20020101

REACTIONS (10)
  - CARDIAC FAILURE [None]
  - CEREBROVASCULAR ACCIDENT [None]
  - CHEST PAIN [None]
  - HEPATOCELLULAR DAMAGE [None]
  - INTERVERTEBRAL DISC PROTRUSION [None]
  - MYOCARDIAL INFARCTION [None]
  - RENAL DISORDER [None]
  - THROMBOSIS [None]
  - ULCER [None]
  - VARICOSE VEIN [None]
